FAERS Safety Report 20730964 (Version 1)
Quarter: 2022Q2

REPORT INFORMATION
  Report Type: Other
  Country: CN (occurrence: CN)
  Receive Date: 20220420
  Receipt Date: 20220420
  Transmission Date: 20220721
  Serious: Yes (Other)
  Sender: FDA-Public Use
  Company Number: CN-Blueprint Medicines Corporation-SO-CN-2022-001125

PATIENT
  Sex: Female

DRUGS (1)
  1. GAVRETO [Suspect]
     Active Substance: PRALSETINIB
     Indication: Product used for unknown indication
     Route: 048

REACTIONS (9)
  - Deformity of orbit [Unknown]
  - Paraesthesia [Unknown]
  - Weight increased [Unknown]
  - Hypertrichosis [Unknown]
  - Oligomenorrhoea [Unknown]
  - Blood oestrogen decreased [Unknown]
  - Back pain [Unknown]
  - Face oedema [Unknown]
  - Oedema peripheral [Unknown]
